FAERS Safety Report 4447941-7 (Version None)
Quarter: 2004Q3

REPORT INFORMATION
  Report Type: 
  Country: None (occurrence: None)
  Receive Date: 20040913
  Receipt Date: 20040902
  Transmission Date: 20050211
  Serious: Yes (Life-Threatening, Hospitalization)
  Sender: FDA-Public Use
  Company Number: JP-ROCHE-379390

PATIENT
  Age: 53 Year
  Sex: Female
  Weight: 45 kg

DRUGS (6)
  1. CAPECITABINE [Suspect]
     Indication: BREAST CANCER METASTATIC
     Dosage: PATIENT RECEIVED 1500 MG BID (3000MG PER DAY) IN THREE WEEKLY CYCLES; 2 WEEKS OF TREATMENT FOLLOWED+
     Route: 048
     Dates: start: 20040818, end: 20040830
  2. BROTIZOLAM [Concomitant]
  3. CIPROFLOXACIN HCL [Concomitant]
     Dates: start: 20040820, end: 20040825
  4. LOXOPROFEN SODIUM [Concomitant]
     Dates: start: 20040826
  5. METOCLOPRAMIDE [Concomitant]
     Dates: start: 20040826
  6. TEPRENONE [Concomitant]
     Dates: start: 20040826

REACTIONS (2)
  - ANOREXIA [None]
  - BLOOD CREATININE INCREASED [None]
